FAERS Safety Report 23489178 (Version 5)
Quarter: 2024Q2

REPORT INFORMATION
  Report Type: Spontaneous
  Country: JP (occurrence: JP)
  Receive Date: 20240206
  Receipt Date: 20240505
  Transmission Date: 20240716
  Serious: Yes (Hospitalization, Other)
  Sender: FDA-Public Use
  Company Number: JP-MSD-2401JPN001120J

PATIENT
  Age: 8 Decade
  Sex: Female

DRUGS (2)
  1. KEYTRUDA [Suspect]
     Active Substance: PEMBROLIZUMAB
     Indication: Uterine cancer
     Dosage: 200 MILLIGRAM, Q3W
     Route: 041
     Dates: start: 20240105, end: 20240105
  2. LENVATINIB MESYLATE [Suspect]
     Active Substance: LENVATINIB MESYLATE
     Indication: Uterine cancer
     Dosage: 20 MILLIGRAM, QD
     Route: 048
     Dates: start: 20240105, end: 20240124

REACTIONS (9)
  - Immune-mediated myositis [Recovered/Resolved]
  - Immune-mediated myasthenia gravis [Not Recovered/Not Resolved]
  - Immune-mediated enterocolitis [Recovering/Resolving]
  - Coronavirus infection [Recovered/Resolved]
  - Alanine aminotransferase increased [Recovered/Resolved]
  - Hypertension [Recovered/Resolved]
  - Arthralgia [Recovering/Resolving]
  - Epistaxis [Recovered/Resolved]
  - Malaise [Recovered/Resolved]

NARRATIVE: CASE EVENT DATE: 20240101
